FAERS Safety Report 8407026-1 (Version None)
Quarter: 2012Q2

REPORT INFORMATION
  Report Type: 
  Country: None (occurrence: None)
  Receive Date: 20120529
  Receipt Date: 20080205
  Transmission Date: 20120825
  Serious: Yes (Hospitalization)
  Sender: FDA-Public Use
  Company Number: 000090

PATIENT
  Sex: Male

DRUGS (7)
  1. SULPERAZON (SULBACTAM SODIUM/CEFOPERAZONE SODIUM) [Concomitant]
  2. MEROPENEM [Concomitant]
  3. PLETAL [Suspect]
     Indication: PERIPHERAL ARTERIAL OCCLUSIVE DISEASE
     Dosage: 100 MG, BID
     Route: 048
  4. HYDROCORTISONE SODIUM SUCCINATE [Suspect]
     Indication: SEPTIC SHOCK
     Dosage: 250 MG, QD
     Dates: start: 20070519
  5. CLINDAMYCIN PHOSPHATE [Concomitant]
  6. FRAGMIN [Suspect]
     Indication: DISSEMINATED INTRAVASCULAR COAGULATION
     Dosage: 4000 IU, QD
     Dates: start: 20070518
  7. ZYVOX [Suspect]
     Dates: start: 20070519

REACTIONS (10)
  - DIABETES MELLITUS [None]
  - RENAL FAILURE ACUTE [None]
  - GASTROINTESTINAL HAEMORRHAGE [None]
  - PLATELET COUNT DECREASED [None]
  - PNEUMONIA [None]
  - SYSTEMIC CANDIDA [None]
  - SUPERINFECTION [None]
  - ACUTE RESPIRATORY DISTRESS SYNDROME [None]
  - DISSEMINATED INTRAVASCULAR COAGULATION [None]
  - SEPTIC SHOCK [None]
